FAERS Safety Report 5252545-2 (Version None)
Quarter: 2007Q1

REPORT INFORMATION
  Report Type: 
  Country: None (occurrence: None)
  Receive Date: 20070301
  Receipt Date: 20070219
  Transmission Date: 20070707
  Serious: Yes (Hospitalization)
  Sender: FDA-Public Use
  Company Number: FR-AVENTIS-200710606FR

PATIENT
  Age: 75 Year
  Sex: Female

DRUGS (2)
  1. ARAVA [Suspect]
     Indication: RHEUMATOID ARTHRITIS
     Route: 048
  2. CORTANCYL [Suspect]
     Indication: RHEUMATOID ARTHRITIS
     Route: 048

REACTIONS (2)
  - CONDITION AGGRAVATED [None]
  - VARICOSE ULCERATION [None]
